FAERS Safety Report 6885621-9 (Version None)
Quarter: 2010Q3

REPORT INFORMATION
  Report Type: 
  Country: None (occurrence: None)
  Receive Date: 20100729
  Receipt Date: 20080303
  Transmission Date: 20110219
  Serious: Yes (Other)
  Sender: FDA-Public Use
  Company Number: US-PFIZER INC-2008012901

PATIENT
  Sex: Female
  Weight: 54.6 kg

DRUGS (8)
  1. CELEBREX [Suspect]
     Indication: ARTHROPATHY
     Route: 048
     Dates: start: 20080207, end: 20080207
  2. VITAMINS [Concomitant]
     Route: 048
  3. CITRUCEL [Concomitant]
     Route: 048
  4. VITAMIN D [Concomitant]
     Route: 048
  5. CENTRUM SILVER [Concomitant]
     Route: 048
  6. ACETYLSALICYLIC ACID SRT [Concomitant]
     Route: 048
  7. PRILOSEC [Concomitant]
     Route: 048
  8. FOSAMAX PLUS D [Concomitant]
     Route: 048

REACTIONS (2)
  - RASH [None]
  - VISION BLURRED [None]
